FAERS Safety Report 9741558 (Version 1)
Quarter: 2013Q4

REPORT INFORMATION
  Report Type: Spontaneous
  Country: FR (occurrence: FR)
  Receive Date: 20131210
  Receipt Date: 20131210
  Transmission Date: 20140711
  Serious: Yes (Death)
  Sender: FDA-Public Use
  Company Number: PHHY2013FR141478

PATIENT
  Age: 84 Year
  Sex: Female

DRUGS (10)
  1. ECONAZOLE [Suspect]
     Indication: FUNGAL SKIN INFECTION
     Dosage: 1 DF, BID
     Route: 061
     Dates: start: 20100806, end: 20100809
  2. TRIFLUCAN [Suspect]
     Indication: FUNGAL SKIN INFECTION
     Dosage: 1 DF, QD
     Route: 048
     Dates: start: 20100806, end: 20100809
  3. CEFTRIAXONE PANPHARMA [Suspect]
     Dosage: 1 G, BID
     Route: 042
     Dates: start: 20100804
  4. CEFIXIME ARROW [Suspect]
     Dosage: 200 MG, BID
     Route: 048
     Dates: start: 20100728, end: 20100803
  5. COUMADINE [Concomitant]
     Indication: ARRHYTHMIA
     Dosage: 1 DF, QD
     Route: 048
     Dates: end: 20100811
  6. APROVEL [Concomitant]
     Dosage: 150 MG, QD
     Route: 048
  7. EQUANIL [Concomitant]
     Dosage: 400 MG, QD
     Route: 048
  8. CORDARONE [Concomitant]
     Dosage: 1 DF, QD
     Route: 048
  9. LASILIX FAIBLE [Concomitant]
     Dosage: 1 DF, QD
  10. DISCOTRINE [Concomitant]
     Dosage: 1 DF, QD [10 MG PER 24 HOURS]
     Route: 062

REACTIONS (2)
  - Skin reaction [Fatal]
  - Cheilitis [Fatal]
